FAERS Safety Report 4978860-5 (Version None)
Quarter: 2006Q2

REPORT INFORMATION
  Report Type: 
  Country: None (occurrence: None)
  Receive Date: 20060417
  Receipt Date: 20060403
  Transmission Date: 20061013
  Serious: Yes (Hospitalization)
  Sender: FDA-Public Use
  Company Number: SP-2006-002940

PATIENT
  Age: 76 Year
  Sex: Female

DRUGS (4)
  1. VOTUM PLUS (OLMESARTAN + HCTZ) [Suspect]
     Indication: HYPERTENSION
     Dosage: 20 MG/ 25 MG
     Dates: start: 20051121, end: 20060102
  2. FELODIPINE [Concomitant]
  3. ISDN [Concomitant]
  4. DICLOFENAC SODIUM [Concomitant]

REACTIONS (4)
  - CONFUSIONAL STATE [None]
  - HYPOGLYCAEMIA [None]
  - HYPOKALAEMIA [None]
  - HYPONATRAEMIA [None]
